FAERS Safety Report 12560938 (Version 1)
Quarter: 2016Q3

REPORT INFORMATION
  Report Type: Report from Study
  Country: IT (occurrence: IT)
  Receive Date: 20160715
  Receipt Date: 20160715
  Transmission Date: 20161109
  Serious: Yes (Other)
  Sender: FDA-Public Use
  Company Number: IT-TEVA-675350ACC

PATIENT

DRUGS (2)
  1. SIMVASTATIN. [Suspect]
     Active Substance: SIMVASTATIN
     Dosage: UNKNOWN
  2. WARFARIN [Interacting]
     Active Substance: WARFARIN
     Dosage: UNKNOWN

REACTIONS (4)
  - Haemorrhage [Unknown]
  - Drug interaction [Unknown]
  - Renal failure [Unknown]
  - Rhabdomyolysis [Unknown]
